FAERS Safety Report 8900113 (Version 2)
Quarter: 2012Q4

REPORT INFORMATION
  Report Type: 
  Country: US (occurrence: US)
  Receive Date: 20121109
  Receipt Date: 20121214
  Transmission Date: 20130627
  Serious: Yes (Other)
  Sender: FDA-Public Use
  Company Number: US-BAYER-2012-117098

PATIENT
  Age: 69 Year
  Sex: Male
  Weight: 75 kg

DRUGS (2)
  1. CIPRO [Suspect]
     Indication: PROSTATITIS
     Dosage: 500 mg, BID
     Route: 048
     Dates: start: 20121025, end: 20121029
  2. EXFORGE [Concomitant]
     Indication: HYPERTENSION
     Dosage: 5/160 mg

REACTIONS (4)
  - Upper gastrointestinal haemorrhage [Recovered/Resolved]
  - Abdominal pain [Recovered/Resolved]
  - Diarrhoea [Recovered/Resolved]
  - Melaena [Recovered/Resolved]
